FAERS Safety Report 5889610-2 (Version None)
Quarter: 2008Q3

REPORT INFORMATION
  Report Type: 
  Country: None (occurrence: None)
  Receive Date: 20080919
  Receipt Date: 20080912
  Transmission Date: 20090109
  Serious: Yes (Death, Hospitalization)
  Sender: FDA-Public Use
  Company Number: A0748434A

PATIENT
  Age: 56 Year
  Sex: Male
  Weight: 113.6 kg

DRUGS (3)
  1. AVANDIA [Suspect]
     Route: 048
     Dates: start: 20041001, end: 20050101
  2. METOLAZONE [Concomitant]
  3. SIMVASTATIN [Concomitant]

REACTIONS (2)
  - CARDIAC DISORDER [None]
  - CARDIAC FAILURE CONGESTIVE [None]
